FAERS Safety Report 12417501 (Version 1)
Quarter: 2016Q2

REPORT INFORMATION
  Report Type: Spontaneous
  Country: DK (occurrence: DK)
  Receive Date: 20160530
  Receipt Date: 20160530
  Transmission Date: 20160815
  Serious: Yes (Other)
  Sender: FDA-Public Use
  Company Number: DK-JNJFOC-20110600505

PATIENT
  Age: 59 Year
  Sex: Female
  Weight: 66 kg

DRUGS (6)
  1. ENBREL [Concomitant]
     Active Substance: ETANERCEPT
     Indication: RHEUMATOID ARTHRITIS
     Dosage: DOSE : 50
     Route: 065
     Dates: start: 20140519, end: 201410
  2. REMICADE [Suspect]
     Active Substance: INFLIXIMAB
     Indication: RHEUMATOID ARTHRITIS
     Dosage: 100 MG INTRAVENOUS ADMINISTERED AS INFUSION TWICE
     Route: 042
  3. REMICADE [Suspect]
     Active Substance: INFLIXIMAB
     Indication: RHEUMATOID ARTHRITIS
     Dosage: 100 MG INTRAVENOUS ADMINISTERED AS INFUSION TWICE
     Route: 042
     Dates: start: 201008, end: 201008
  4. ROACTEMRA [Concomitant]
     Active Substance: TOCILIZUMAB
     Indication: RHEUMATOID ARTHRITIS
     Dosage: DOSE: 162, LAST DOSE IN 6-MAR.
     Route: 065
     Dates: start: 20141013, end: 20150327
  5. ACTEMRA [Concomitant]
     Active Substance: TOCILIZUMAB
     Route: 050
  6. REMICADE [Suspect]
     Active Substance: INFLIXIMAB
     Indication: RHEUMATOID ARTHRITIS
     Dosage: 100 MG INTRAVENOUS ADMINISTERED AS INFUSION TWICE
     Route: 042
     Dates: start: 201008, end: 201008

REACTIONS (38)
  - Dry eye [Not Recovered/Not Resolved]
  - Rash [Not Recovered/Not Resolved]
  - Weight decreased [Unknown]
  - Stress [Unknown]
  - Dizziness [Not Recovered/Not Resolved]
  - Pain in extremity [Unknown]
  - Blood pressure abnormal [Unknown]
  - Skin exfoliation [Unknown]
  - Muscle spasms [Unknown]
  - Joint swelling [Unknown]
  - Dry mouth [Unknown]
  - Dry skin [Unknown]
  - Joint swelling [Unknown]
  - Dry throat [Not Recovered/Not Resolved]
  - Body temperature decreased [Unknown]
  - Peripheral nerve injury [Unknown]
  - Rheumatoid arthritis [Unknown]
  - Burning sensation [Unknown]
  - Hypoaesthesia [Unknown]
  - Corneal disorder [Unknown]
  - Musculoskeletal pain [Unknown]
  - Synovitis [Unknown]
  - Nodule [Unknown]
  - Nerve injury [Unknown]
  - Nasal dryness [Not Recovered/Not Resolved]
  - Neuritis [Unknown]
  - Peripheral swelling [Unknown]
  - Activities of daily living impaired [Unknown]
  - Intervertebral disc protrusion [Unknown]
  - Arthralgia [Unknown]
  - Oedema [Unknown]
  - Skin burning sensation [Not Recovered/Not Resolved]
  - Erythema [Unknown]
  - Swelling [Not Recovered/Not Resolved]
  - Tendon injury [Unknown]
  - Sjogren^s syndrome [Not Recovered/Not Resolved]
  - Oedema peripheral [Unknown]
  - Asthenia [Unknown]

NARRATIVE: CASE EVENT DATE: 201008
